FAERS Safety Report 8395963-6 (Version None)
Quarter: 2012Q2

REPORT INFORMATION
  Report Type: 
  Country: None (occurrence: None)
  Receive Date: 20120530
  Receipt Date: 20120524
  Transmission Date: 20120825
  Serious: Yes (Death, Hospitalization, Other)
  Sender: FDA-Public Use
  Company Number: US-PFIZER INC-2012081354

PATIENT
  Sex: Male
  Weight: 90.4 kg

DRUGS (10)
  1. CALTRATE PLUS [Concomitant]
     Indication: VITAMIN D DEFICIENCY
     Dosage: 600 MG/400 UNITS OF VITAMIN D, BID
  2. HUMALOG [Concomitant]
     Indication: DIABETES MELLITUS
     Dosage: UNK
     Route: 058
  3. NAPROXEN (ALEVE) [Concomitant]
  4. BENADRYL [Concomitant]
     Indication: INSOMNIA
     Dosage: 25 MG, 2 AT BED TIME
  5. LOPERAMIDE [Concomitant]
     Indication: DIARRHOEA
     Dosage: 2 MG, AS NEEDED
     Route: 048
  6. SUTENT [Suspect]
     Indication: GASTROINTESTINAL STROMAL TUMOUR
     Dosage: 50 MG, 1X/DAY
     Dates: start: 20111001
  7. ACETYLSALICYLIC ACID [Concomitant]
     Dosage: 2 DF, WEEKLY
  8. PANCRELIPASE [Concomitant]
     Dosage: 24000 IU, 3 CAPSULES T.I.D WITH MEALS AND 2 CAPSULES WITH SNACKS
  9. VITAMIN D [Concomitant]
     Dosage: 50000 IU, EVERY WEEK
     Route: 048
  10. EQUATE [Concomitant]
     Indication: ACIDOSIS
     Dosage: 150 MG, 2 IN A DAY

REACTIONS (8)
  - MULTI-ORGAN FAILURE [None]
  - HAEMORRHAGE [None]
  - WOUND DEHISCENCE [None]
  - RESPIRATORY DISTRESS [None]
  - ABDOMINAL SEPSIS [None]
  - GASTROINTESTINAL STOMA COMPLICATION [None]
  - POST PROCEDURAL COMPLICATION [None]
  - DUODENAL PERFORATION [None]
